FAERS Safety Report 7048580-4 (Version None)
Quarter: 2010Q4

REPORT INFORMATION
  Report Type: 
  Country: None (occurrence: None)
  Receive Date: 20101017
  Receipt Date: 20101004
  Transmission Date: 20110411
  Serious: Yes (Death, Other)
  Sender: FDA-Public Use
  Company Number: GB-MYLANLABS-2010S1018255

PATIENT
  Age: 46 Year
  Sex: Male

DRUGS (2)
  1. AZATHIOPRINE [Suspect]
     Indication: LIVER TRANSPLANT
  2. CYCLOSPORINE [Suspect]
     Indication: LIVER TRANSPLANT

REACTIONS (5)
  - CYTOMEGALOVIRUS COLITIS [None]
  - GENERAL PHYSICAL HEALTH DETERIORATION [None]
  - METASTASES TO LIVER [None]
  - METASTASES TO LYMPH NODES [None]
  - RENAL FAILURE [None]
